APPROVED DRUG PRODUCT: SUPRAX
Active Ingredient: CEFIXIME
Strength: 200MG/5ML
Dosage Form/Route: FOR SUSPENSION;ORAL
Application: A065355 | Product #001 | TE Code: AB
Applicant: LUPIN PHARMACEUTICALS INC
Approved: Apr 10, 2007 | RLD: No | RS: Yes | Type: RX